FAERS Safety Report 9099935 (Version 2)
Quarter: 2013Q2

REPORT INFORMATION
  Report Type: Spontaneous
  Country: US (occurrence: US)
  Receive Date: 20130214
  Receipt Date: 20130513
  Transmission Date: 20140414
  Serious: No
  Sender: FDA-Public Use
  Company Number: US-009507513-1302USA003185

PATIENT
  Age: 17 Year
  Sex: Female

DRUGS (2)
  1. IMPLANON [Suspect]
     Indication: CONTRACEPTION
     Dosage: 3 YEAR IMPLANT
     Dates: start: 20121219, end: 20121219
  2. IMPLANON [Suspect]
     Dosage: 3 YEAR IMPLANT
     Route: 059
     Dates: start: 20121219

REACTIONS (3)
  - Device difficult to use [Recovered/Resolved]
  - Product quality issue [Unknown]
  - No adverse event [Unknown]
